FAERS Safety Report 6825836-9 (Version None)
Quarter: 2010Q3

REPORT INFORMATION
  Report Type: 
  Country: None (occurrence: None)
  Receive Date: 20100708
  Receipt Date: 20100708
  Transmission Date: 20110219
  Serious: Yes (Other)
  Sender: FDA-Public Use
  Company Number: None

PATIENT
  Sex: Female
  Weight: 71.6683 kg

DRUGS (1)
  1. GLIPIZIDE [Suspect]
     Dosage: 2.5 MG 1 DAILY 2/3 YEARS OR MORE

REACTIONS (2)
  - MEDICATION RESIDUE [None]
  - TABLET ISSUE [None]
